FAERS Safety Report 8847630 (Version 1)
Quarter: 2012Q4

REPORT INFORMATION
  Report Type: 
  Country: CA (occurrence: CA)
  Receive Date: 20121018
  Receipt Date: 20121018
  Transmission Date: 20130627
  Serious: Yes (Other)
  Sender: FDA-Public Use
  Company Number: CA-ELI_LILLY_AND_COMPANY-CA201210002067

PATIENT
  Age: 35 Year
  Sex: Male

DRUGS (4)
  1. ZYPREXA [Suspect]
     Dosage: 12.5 mg, qd
     Route: 048
  2. CLONAZEPAM [Concomitant]
  3. LITHIUM [Concomitant]
  4. SEROQUEL [Concomitant]
     Dosage: 300 mg, UNK

REACTIONS (11)
  - Condition aggravated [Not Recovered/Not Resolved]
  - Dysarthria [Not Recovered/Not Resolved]
  - Dysuria [Not Recovered/Not Resolved]
  - Gastrooesophageal reflux disease [Not Recovered/Not Resolved]
  - Hair growth abnormal [Not Recovered/Not Resolved]
  - Nervousness [Not Recovered/Not Resolved]
  - Spermatogenesis abnormal [Not Recovered/Not Resolved]
  - Tic [Not Recovered/Not Resolved]
  - Tourette^s disorder [Not Recovered/Not Resolved]
  - Tremor [Not Recovered/Not Resolved]
  - Weight increased [Not Recovered/Not Resolved]
